FAERS Safety Report 5311147-X (Version None)
Quarter: 2007Q2

REPORT INFORMATION
  Report Type: 
  Country: None (occurrence: None)
  Receive Date: 20070430
  Receipt Date: 20070419
  Transmission Date: 20071010
  Serious: Yes (Hospitalization)
  Sender: FDA-Public Use
  Company Number: FR-ELI_LILLY_AND_COMPANY-FR200704004703

PATIENT
  Age: 68 Year
  Sex: Male
  Weight: 45 kg

DRUGS (6)
  1. ZYPREXA [Suspect]
     Indication: PSYCHOTIC DISORDER
     Dosage: 10 MG, OTHER
     Route: 048
     Dates: start: 20070102, end: 20070102
  2. NORSET [Concomitant]
     Indication: PSYCHOTIC DISORDER
     Dosage: 1 D/F, DAILY (1/D)
     Route: 048
  3. XATRAL                                  /FRA/ [Concomitant]
     Indication: BENIGN NEOPLASM OF PROSTATE
     Dosage: 1 D/F, DAILY (1/D)
     Route: 048
  4. DEPAMIDE [Concomitant]
     Indication: PSYCHOTIC DISORDER
     Dosage: 300 MG, 3/D
     Route: 048
  5. MODITEN [Concomitant]
     Indication: PSYCHOTIC DISORDER
     Dosage: 25 MG, DAILY (1/D)
     Route: 048
  6. RIVOTRIL [Concomitant]
     Dosage: UNK, UNKNOWN
     Route: 048

REACTIONS (1)
  - HYPOTHERMIA [None]
